FAERS Safety Report 4620935-4 (Version None)
Quarter: 2005Q1

REPORT INFORMATION
  Report Type: 
  Country: None (occurrence: None)
  Receive Date: 20050328
  Receipt Date: 20050318
  Transmission Date: 20050727
  Serious: Yes (Disabling, Other)
  Sender: FDA-Public Use
  Company Number: ES-ABBOTT-05P-144-0294664-00

PATIENT
  Sex: Female

DRUGS (4)
  1. HUMIRA [Suspect]
     Indication: RHEUMATOID ARTHRITIS
     Route: 058
     Dates: start: 20030701, end: 20040701
  2. LEFLUNOMIDE [Concomitant]
     Indication: RHEUMATOID ARTHRITIS
  3. DEFLAZACORT [Concomitant]
     Indication: RHEUMATOID ARTHRITIS
  4. ETANERCEPT [Concomitant]
     Indication: UVEITIS
     Dates: start: 20040701, end: 20041001

REACTIONS (7)
  - CORYNEBACTERIUM INFECTION [None]
  - DRUG INEFFECTIVE [None]
  - EPISCLERITIS [None]
  - HERPES ZOSTER [None]
  - RETINAL DETACHMENT [None]
  - UVEITIS [None]
  - VITREOUS HAEMORRHAGE [None]
